FAERS Safety Report 24029615 (Version 1)
Quarter: 2024Q2

REPORT INFORMATION
  Report Type: Spontaneous
  Country: US (occurrence: US)
  Receive Date: 20240628
  Receipt Date: 20240628
  Transmission Date: 20240715
  Serious: Yes (Other)
  Sender: FDA-Public Use
  Company Number: US-ANIPHARMA-2024-US-035851

PATIENT
  Sex: Female

DRUGS (2)
  1. ARIMIDEX [Suspect]
     Active Substance: ANASTROZOLE
     Indication: Product used for unknown indication
  2. IBRANCE [Suspect]
     Active Substance: PALBOCICLIB
     Dosage: 75MG TABLET ORALLY ONCE EVERY OTHER DAY
     Route: 048
     Dates: start: 201912

REACTIONS (2)
  - Jaw disorder [Unknown]
  - Tooth extraction [Unknown]
